FAERS Safety Report 6304436-3 (Version None)
Quarter: 2009Q3

REPORT INFORMATION
  Report Type: 
  Country: None (occurrence: None)
  Receive Date: 20090811
  Receipt Date: 20090805
  Transmission Date: 20100115
  Serious: Yes (Death, Other)
  Sender: FDA-Public Use
  Company Number: US-CELGENEUS-163-21880-09041470

PATIENT
  Sex: Male

DRUGS (2)
  1. REVLIMID [Suspect]
     Indication: MYELODYSPLASTIC SYNDROME
     Route: 048
     Dates: start: 20090408
  2. LASIX [Concomitant]
     Indication: DRUG USE FOR UNKNOWN INDICATION
     Route: 048

REACTIONS (8)
  - DRUG INTOLERANCE [None]
  - FLUID RETENTION [None]
  - LYMPHADENOPATHY [None]
  - MYELODYSPLASTIC SYNDROME [None]
  - NAUSEA [None]
  - NON-HODGKIN'S LYMPHOMA [None]
  - PRURITUS [None]
  - SPLENOMEGALY [None]
